FAERS Safety Report 11819995 (Version 1)
Quarter: 2015Q4

REPORT INFORMATION
  Report Type: Spontaneous
  Country: CN (occurrence: CN)
  Receive Date: 20151210
  Receipt Date: 20151210
  Transmission Date: 20160305
  Serious: Yes (Other)
  Sender: FDA-Public Use
  Company Number: CN-PFIZER INC-2015417252

PATIENT
  Age: 76 Year
  Sex: Female
  Weight: 46 kg

DRUGS (2)
  1. CELEBREX [Suspect]
     Active Substance: CELECOXIB
     Indication: PYREXIA
     Dosage: 0.2 G, 1X/DAY
     Route: 048
     Dates: start: 20130226, end: 201302
  2. CELEBREX [Suspect]
     Active Substance: CELECOXIB
     Dosage: 0.2 G, 1X/DAY
     Route: 048
     Dates: start: 20130228, end: 20130228

REACTIONS (2)
  - Skin exfoliation [Recovering/Resolving]
  - Drug eruption [Recovering/Resolving]

NARRATIVE: CASE EVENT DATE: 20130226
